FAERS Safety Report 23866509 (Version 1)
Quarter: 2024Q2

REPORT INFORMATION
  Report Type: Spontaneous
  Country: US (occurrence: US)
  Receive Date: 20240517
  Receipt Date: 20240517
  Transmission Date: 20240716
  Serious: Yes (Hospitalization)
  Sender: FDA-Public Use
  Company Number: US-DRL-USA-LIT/USA/24/0007133

PATIENT
  Age: 6 Decade
  Sex: Female

DRUGS (10)
  1. FLUOXETINE [Suspect]
     Active Substance: FLUOXETINE HYDROCHLORIDE
     Indication: Affective disorder
  2. FLUOXETINE [Suspect]
     Active Substance: FLUOXETINE HYDROCHLORIDE
     Indication: Post-traumatic stress disorder
  3. ARIPIPRAZOLE [Suspect]
     Active Substance: ARIPIPRAZOLE
     Indication: Injury
  4. ARIPIPRAZOLE [Suspect]
     Active Substance: ARIPIPRAZOLE
     Indication: Nightmare
  5. PRAZOSIN [Suspect]
     Active Substance: PRAZOSIN
     Indication: Injury
     Dosage: MORNING AND AFTERNOON
  6. PRAZOSIN [Suspect]
     Active Substance: PRAZOSIN
     Indication: Nightmare
     Dosage: BEDTIME
  7. PRAZOSIN [Suspect]
     Active Substance: PRAZOSIN
     Dosage: BEDTIME
  8. PRAZOSIN [Suspect]
     Active Substance: PRAZOSIN
     Dosage: BEDTIME
  9. TRAZODONE [Suspect]
     Active Substance: TRAZODONE HYDROCHLORIDE
     Indication: Insomnia
     Dosage: BEDTIME
  10. PRIMIDONE [Concomitant]
     Active Substance: PRIMIDONE
     Indication: Insomnia
     Dosage: BEDTIME

REACTIONS (2)
  - Somnolence [Unknown]
  - Product use in unapproved indication [Unknown]
